FAERS Safety Report 23233808 (Version 2)
Quarter: 2023Q4

REPORT INFORMATION
  Report Type: Spontaneous
  Country: EG (occurrence: EG)
  Receive Date: 20231128
  Receipt Date: 20231215
  Transmission Date: 20240110
  Serious: Yes (Hospitalization, Other)
  Sender: FDA-Public Use
  Company Number: EG-JNJFOC-20231068290

PATIENT
  Age: 23 Year
  Sex: Female

DRUGS (4)
  1. REMICADE [Suspect]
     Active Substance: INFLIXIMAB
     Indication: Crohn^s disease
     Dosage: 3 VIALS
     Route: 041
     Dates: start: 20221128
  2. REMICADE [Suspect]
     Active Substance: INFLIXIMAB
     Dosage: 3 VIALS
     Route: 041
     Dates: start: 20221212
  3. REMICADE [Suspect]
     Active Substance: INFLIXIMAB
     Dosage: 3 VIALS
     Route: 041
     Dates: start: 20230112
  4. REMICADE [Suspect]
     Active Substance: INFLIXIMAB
     Dosage: 3 VIALS
     Route: 041
     Dates: start: 20230318, end: 20230515

REACTIONS (9)
  - Crohn^s disease [Unknown]
  - Adverse event [Unknown]
  - Urethral fistula [Unknown]
  - Bone pain [Not Recovered/Not Resolved]
  - Anal fistula [Unknown]
  - Drug specific antibody [Unknown]
  - Drug level below therapeutic [Unknown]
  - Drug ineffective [Unknown]
  - Off label use [Unknown]
